FAERS Safety Report 6788918-6 (Version None)
Quarter: 2010Q2

REPORT INFORMATION
  Report Type: 
  Country: None (occurrence: None)
  Receive Date: 20100623
  Receipt Date: 20080605
  Transmission Date: 20101027
  Serious: No
  Sender: FDA-Public Use
  Company Number: US-PFIZER INC-2008048396

PATIENT
  Sex: Female

DRUGS (2)
  1. COLESTID [Suspect]
  2. ALL OTHER THERAPEUTIC PRODUCTS [Suspect]

REACTIONS (1)
  - THYROID FUNCTION TEST ABNORMAL [None]
